FAERS Safety Report 15758161 (Version 1)
Quarter: 2018Q4

REPORT INFORMATION
  Report Type: Spontaneous
  Country: SE (occurrence: SE)
  Receive Date: 20181225
  Receipt Date: 20181225
  Transmission Date: 20190205
  Serious: Yes (Other)
  Sender: FDA-Public Use
  Company Number: SE-ACCORD-097627

PATIENT
  Age: 57 Year
  Sex: Female

DRUGS (2)
  1. QUETIAPINE. [Suspect]
     Active Substance: QUETIAPINE
     Indication: INSOMNIA
     Dosage: STRENGTH 25 MG: 1-2 TO THE NIGHT IF NECESSARY
     Route: 048
     Dates: start: 201710, end: 201710
  2. ESCITALOPRAM [Concomitant]
     Active Substance: ESCITALOPRAM OXALATE

REACTIONS (4)
  - Suicidal ideation [Recovered/Resolved]
  - Emotional poverty [Recovered/Resolved]
  - Off label use [Unknown]
  - Indifference [Recovered/Resolved]

NARRATIVE: CASE EVENT DATE: 201710
